FAERS Safety Report 13371362 (Version 1)
Quarter: 2017Q1

REPORT INFORMATION
  Report Type: Spontaneous
  Country: US (occurrence: US)
  Receive Date: 20170324
  Receipt Date: 20170324
  Transmission Date: 20170429
  Serious: Yes (Hospitalization)
  Sender: FDA-Public Use
  Company Number: US-GLAXOSMITHKLINE-US2017041475

PATIENT
  Age: 62 Year
  Sex: Female

DRUGS (2)
  1. TRANSDERM SCOP [Suspect]
     Active Substance: SCOPOLAMINE
     Indication: CREST SYNDROME
     Dosage: UNK
     Dates: start: 201510
  2. TRANSDERM SCOP [Suspect]
     Active Substance: SCOPOLAMINE
     Indication: SCLERODERMA

REACTIONS (7)
  - Accidental exposure to product [Unknown]
  - Incorrect drug administration duration [Unknown]
  - Glare [Not Recovered/Not Resolved]
  - Mydriasis [Recovered/Resolved]
  - Therapeutic response unexpected [Unknown]
  - Off label use [Unknown]
  - Vision blurred [Not Recovered/Not Resolved]

NARRATIVE: CASE EVENT DATE: 201609
